FAERS Safety Report 7391136-4 (Version None)
Quarter: 2011Q1

REPORT INFORMATION
  Report Type: 
  Country: None (occurrence: None)
  Receive Date: 20110324
  Receipt Date: 20110228
  Transmission Date: 20110831
  Serious: Yes (Other)
  Sender: FDA-Public Use
  Company Number: USA/USA/11/0017558

PATIENT
  Age: 39 Year
  Sex: Male

DRUGS (3)
  1. DEPAKOTE [Concomitant]
  2. OMEPRAZOLE MAGNESIUM [Suspect]
     Indication: GASTROOESOPHAGEAL REFLUX DISEASE
     Dosage: 20.6 MG, 1 TO 2 CAPSULES DAILY, ORAL
     Route: 048
     Dates: end: 20110201
  3. RISPERIDONE [Concomitant]

REACTIONS (2)
  - DRUG SCREEN FALSE POSITIVE [None]
  - LOSS OF EMPLOYMENT [None]
